FAERS Safety Report 7363390-6 (Version None)
Quarter: 2011Q1

REPORT INFORMATION
  Report Type: 
  Country: None (occurrence: None)
  Receive Date: 20110321
  Receipt Date: 20110307
  Transmission Date: 20110831
  Serious: Yes (Other)
  Sender: FDA-Public Use
  Company Number: PHHY2010FR89361

PATIENT
  Age: 78 Year
  Sex: Male

DRUGS (12)
  1. AMN107 [Suspect]
     Indication: CHRONIC MYELOID LEUKAEMIA
     Dosage: 400 MG, BID
     Dates: start: 20081113
  2. ESOMEPRAZOLE [Concomitant]
  3. DILTIAZEM [Concomitant]
  4. TAMSULOSIN HCL [Concomitant]
  5. SIMVASTATIN [Concomitant]
  6. NEORECORMON [Concomitant]
     Dosage: UNK
  7. ZOLPIDEM [Concomitant]
  8. ZYLORIC ^FRESENIUS^ [Concomitant]
  9. KARDEGIC [Concomitant]
  10. PLAVIX [Concomitant]
  11. RAMIPRIL [Concomitant]
  12. LYRICA [Concomitant]

REACTIONS (3)
  - CEREBELLAR HAEMATOMA [None]
  - ATRIAL FIBRILLATION [None]
  - DIPLOPIA [None]
